FAERS Safety Report 9559476 (Version 1)
Quarter: 2013Q3

REPORT INFORMATION
  Report Type: Report from Study
  Country: AU (occurrence: AU)
  Receive Date: 20130927
  Receipt Date: 20130927
  Transmission Date: 20140515
  Serious: Yes (Hospitalization)
  Sender: FDA-Public Use
  Company Number: AU-JNJFOC-20130911653

PATIENT
  Sex: Female

DRUGS (3)
  1. REMICADE [Suspect]
     Indication: CROHN^S DISEASE
     Dosage: INFUSION PERIOD: 2 HOURS
     Route: 042
     Dates: start: 20130612
  2. REMICADE [Suspect]
     Indication: CROHN^S DISEASE
     Route: 042
     Dates: start: 20130724
  3. ANTIBIOTICS UNSPECIFIED [Suspect]
     Indication: TOOTH INFECTION
     Route: 065
     Dates: start: 20130916

REACTIONS (2)
  - Vomiting [Recovering/Resolving]
  - Tooth infection [Not Recovered/Not Resolved]
